FAERS Safety Report 6946586-4 (Version None)
Quarter: 2010Q3

REPORT INFORMATION
  Report Type: 
  Country: None (occurrence: None)
  Receive Date: 20100824
  Receipt Date: 20100811
  Transmission Date: 20110219
  Serious: No
  Sender: FDA-Public Use
  Company Number: 2010US000044

PATIENT
  Age: 66 Year
  Sex: Male

DRUGS (3)
  1. ENTEREG [Suspect]
     Indication: POSTOPERATIVE ILEUS
     Dosage: 12 MG; ; PO
     Route: 048
     Dates: start: 20100616, end: 20100618
  2. LUVOX [Concomitant]
  3. XANAX [Concomitant]

REACTIONS (4)
  - ANASTOMOTIC LEAK [None]
  - DIARRHOEA [None]
  - PYREXIA [None]
  - TACHYCARDIA [None]
